FAERS Safety Report 13231057 (Version 1)
Quarter: 2017Q1

REPORT INFORMATION
  Report Type: Spontaneous
  Country: JP (occurrence: JP)
  Receive Date: 20170214
  Receipt Date: 20170214
  Transmission Date: 20170428
  Serious: Yes (Death, Other)
  Sender: FDA-Public Use
  Company Number: JP-GLAXOSMITHKLINE-JP2017JPN020079

PATIENT
  Age: 11 Year
  Sex: Female
  Weight: 19.7 kg

DRUGS (5)
  1. LAMICTAL [Suspect]
     Active Substance: LAMOTRIGINE
     Dosage: 10 MG, QD
     Route: 048
     Dates: start: 20160623, end: 20160704
  2. RIVOTRIL [Concomitant]
     Active Substance: CLONAZEPAM
     Indication: EPILEPSY
     Dosage: UNK
  3. LAMICTAL [Suspect]
     Active Substance: LAMOTRIGINE
     Dosage: 5 MG, 1D
     Route: 048
     Dates: start: 20160609, end: 20160622
  4. VALPROATE SODIUM. [Concomitant]
     Active Substance: VALPROATE SODIUM
     Indication: EPILEPSY
     Dosage: UNK
  5. LAMICTAL [Suspect]
     Active Substance: LAMOTRIGINE
     Indication: EPILEPSY
     Dosage: 2 MG, 1D
     Route: 048
     Dates: start: 20160526, end: 20160608

REACTIONS (2)
  - Cardio-respiratory arrest [Unknown]
  - Sudden death [Fatal]

NARRATIVE: CASE EVENT DATE: 20160704
